FAERS Safety Report 7077282-3 (Version None)
Quarter: 2010Q4

REPORT INFORMATION
  Report Type: 
  Country: None (occurrence: None)
  Receive Date: 20101101
  Receipt Date: 20101026
  Transmission Date: 20110411
  Serious: Yes (Other)
  Sender: FDA-Public Use
  Company Number: SE-ABBOTT-10P-150-0681674-00

PATIENT
  Age: 72 Year
  Sex: Female

DRUGS (12)
  1. ERGENYL RETARD [Suspect]
     Indication: GRAND MAL CONVULSION
     Dosage: EXTENDED RELEASE
     Route: 048
     Dates: start: 20080401, end: 20100107
  2. CITALOPRAM HYDROBROMIDE [Concomitant]
     Indication: PRODUCT USED FOR UNKNOWN INDICATION
  3. OMEPRAZOLE [Concomitant]
     Indication: PRODUCT USED FOR UNKNOWN INDICATION
  4. LACTULOSE [Concomitant]
     Indication: PRODUCT USED FOR UNKNOWN INDICATION
  5. METOPROLOL [Concomitant]
     Indication: PRODUCT USED FOR UNKNOWN INDICATION
  6. ALVEDON [Concomitant]
     Indication: PRODUCT USED FOR UNKNOWN INDICATION
  7. WARAN [Concomitant]
     Indication: PRODUCT USED FOR UNKNOWN INDICATION
  8. PREDNISOLON [Concomitant]
     Indication: PRODUCT USED FOR UNKNOWN INDICATION
  9. DIAZEPAM [Concomitant]
     Indication: PRODUCT USED FOR UNKNOWN INDICATION
  10. NITROMEX [Concomitant]
     Indication: PRODUCT USED FOR UNKNOWN INDICATION
  11. ZOLPIDEM TARTRATE [Concomitant]
     Indication: PRODUCT USED FOR UNKNOWN INDICATION
  12. IMPUGAN [Concomitant]
     Indication: PRODUCT USED FOR UNKNOWN INDICATION

REACTIONS (3)
  - COGNITIVE DISORDER [None]
  - EPILEPSY [None]
  - TREMOR [None]
